FAERS Safety Report 20030887 (Version 2)
Quarter: 2022Q1

REPORT INFORMATION
  Report Type: Report from Study
  Country: US (occurrence: US)
  Receive Date: 20211103
  Receipt Date: 20220124
  Transmission Date: 20220423
  Serious: No
  Sender: FDA-Public Use
  Company Number: US-SUNOVION-2021SUN004053

PATIENT
  Sex: Female

DRUGS (1)
  1. KYNMOBI [Suspect]
     Active Substance: APOMORPHINE HYDROCHLORIDE
     Indication: Parkinson^s disease
     Dosage: 15 MG
     Route: 060
     Dates: start: 20210824

REACTIONS (4)
  - Feeding disorder [Recovered/Resolved]
  - Weight decreased [Unknown]
  - Stomatitis [Recovered/Resolved]
  - Oral pain [Unknown]
